FAERS Safety Report 7320850-1 (Version None)
Quarter: 2011Q1

REPORT INFORMATION
  Report Type: 
  Country: None (occurrence: None)
  Receive Date: 20110228
  Receipt Date: 20110221
  Transmission Date: 20110831
  Serious: Yes (Other)
  Sender: FDA-Public Use
  Company Number: DE-TEVA-268072GER

PATIENT
  Age: 73 Year
  Sex: Female

DRUGS (3)
  1. METHOTREXATE [Suspect]
     Indication: IMMUNOSUPPRESSANT DRUG THERAPY
  2. PREDNISOLONE [Suspect]
     Indication: IMMUNOSUPPRESSANT DRUG THERAPY
  3. RITUXIMAB [Suspect]
     Indication: IMMUNOSUPPRESSANT DRUG THERAPY

REACTIONS (1)
  - GRANULOMA [None]
